FAERS Safety Report 13886458 (Version 2)
Quarter: 2018Q3

REPORT INFORMATION
  Report Type: Spontaneous
  Country: US (occurrence: US)
  Receive Date: 20170821
  Receipt Date: 20180727
  Transmission Date: 20181010
  Serious: No
  Sender: FDA-Public Use
  Company Number: US-ALLERGAN-1730359US

PATIENT
  Age: 67 Year
  Sex: Male
  Weight: 104.31 kg

DRUGS (4)
  1. VALSARTAN. [Concomitant]
     Active Substance: VALSARTAN
     Indication: HYPERTENSION
     Dosage: 1 DF, QD
     Route: 048
  2. AMLODIPINE [Concomitant]
     Active Substance: AMLODIPINE BESYLATE
     Indication: HYPERTENSION
     Dosage: 1 DF, QD
     Route: 048
  3. ANDRODERM [Suspect]
     Active Substance: TESTOSTERONE
     Indication: BLOOD TESTOSTERONE DECREASED
     Dosage: 4 MG, QD
     Route: 062
     Dates: start: 201701, end: 201708
  4. ANDROGEL [Concomitant]
     Active Substance: TESTOSTERONE
     Indication: PRODUCT USED FOR UNKNOWN INDICATION
     Dosage: UNK
     Route: 061

REACTIONS (10)
  - Skin lesion [Recovered/Resolved]
  - Administration site rash [Not Recovered/Not Resolved]
  - Product administered at inappropriate site [Unknown]
  - Administration site erythema [Not Recovered/Not Resolved]
  - Application site wound [Recovered/Resolved]
  - Administration site pain [Recovered/Resolved]
  - Pruritus [Not Recovered/Not Resolved]
  - Administration site hypersensitivity [Not Recovered/Not Resolved]
  - Administration site irritation [Not Recovered/Not Resolved]
  - Administration site scar [Not Recovered/Not Resolved]

NARRATIVE: CASE EVENT DATE: 20170702
